FAERS Safety Report 5001478-5 (Version None)
Quarter: 2006Q2

REPORT INFORMATION
  Report Type: 
  Country: None (occurrence: None)
  Receive Date: 20060512
  Receipt Date: 20050509
  Transmission Date: 20061013
  Serious: Yes (Hospitalization)
  Sender: FDA-Public Use
  Company Number: US-MERCK-0505USA01076

PATIENT
  Age: 66 Year
  Sex: Female
  Weight: 70 kg

DRUGS (2)
  1. VIOXX [Suspect]
     Indication: ARTHRITIS
     Route: 048
     Dates: start: 20000701, end: 20010901
  2. VIOXX [Suspect]
     Indication: FIBROMYALGIA
     Route: 048
     Dates: start: 20000701, end: 20010901

REACTIONS (15)
  - ATRIAL FIBRILLATION [None]
  - ATRIOVENTRICULAR BLOCK [None]
  - BRADYCARDIA [None]
  - CAROTID ARTERY STENOSIS [None]
  - CEREBRAL ARTERIOSCLEROSIS [None]
  - CEREBROVASCULAR ACCIDENT [None]
  - DEPRESSION [None]
  - GASTROINTESTINAL HAEMORRHAGE [None]
  - HYPERLIPIDAEMIA [None]
  - INTRACRANIAL ANEURYSM [None]
  - SLEEP DISORDER [None]
  - SYNCOPE [None]
  - SYNCOPE VASOVAGAL [None]
  - TRANSIENT ISCHAEMIC ATTACK [None]
  - VENTRICULAR HYPERTROPHY [None]
